FAERS Safety Report 5405074-7 (Version None)
Quarter: 2007Q3

REPORT INFORMATION
  Report Type: 
  Country: None (occurrence: None)
  Receive Date: 20070803
  Receipt Date: 20070724
  Transmission Date: 20080115
  Serious: Yes (Life-Threatening, Hospitalization)
  Sender: FDA-Public Use
  Company Number: IE-ROCHE-483646

PATIENT
  Age: 88 Year
  Sex: Female

DRUGS (2)
  1. BONIVA [Suspect]
     Indication: OSTEOPOROSIS PROPHYLAXIS
     Dosage: THE PATIENT HAD FIVE DOSES OF IBANDRONIC ACID.
     Route: 048
     Dates: start: 20060901, end: 20070216
  2. KETOPROFEN [Suspect]
     Indication: ARTHRITIS
     Route: 065

REACTIONS (2)
  - COLITIS [None]
  - GASTRIC ULCER PERFORATION [None]
